FAERS Safety Report 4584768-X (Version None)
Quarter: 2005Q1

REPORT INFORMATION
  Report Type: 
  Country: None (occurrence: None)
  Receive Date: 20050217
  Receipt Date: 20050204
  Transmission Date: 20050727
  Serious: Yes (Other)
  Sender: FDA-Public Use
  Company Number: GB-JNJFOC-20050201509

PATIENT
  Sex: Male
  Weight: 67 kg

DRUGS (10)
  1. REMICADE [Suspect]
     Indication: RHEUMATOID ARTHRITIS
     Route: 042
  2. CO-DYDRAMOL [Concomitant]
  3. CO-DYDRAMOL [Concomitant]
  4. METHOTREXATE [Concomitant]
  5. PREDNISOLONE [Concomitant]
  6. LODINE [Concomitant]
  7. LANSOPRAZOLE [Concomitant]
  8. FOLIC ACID [Concomitant]
  9. FOSAMAX [Concomitant]
  10. QUININE SULPHATE [Concomitant]

REACTIONS (1)
  - SKIN CANCER [None]
